FAERS Safety Report 7212334-6 (Version None)
Quarter: 2010Q4

REPORT INFORMATION
  Report Type: 
  Country: None (occurrence: None)
  Receive Date: 20101229
  Receipt Date: 20101217
  Transmission Date: 20110411
  Serious: Yes (Hospitalization, Disabling)
  Sender: FDA-Public Use
  Company Number: 020183

PATIENT
  Sex: Female
  Weight: 58 kg

DRUGS (9)
  1. VIMPAT [Suspect]
     Indication: EPILEPSY
     Dosage: SEE IMAGE
     Route: 048
     Dates: start: 20100101, end: 20100101
  2. VIMPAT [Suspect]
     Indication: EPILEPSY
     Dosage: SEE IMAGE
     Route: 048
     Dates: start: 20100101, end: 20100101
  3. VIMPAT [Suspect]
     Indication: EPILEPSY
     Dosage: SEE IMAGE
     Route: 048
     Dates: start: 20100801, end: 20100101
  4. VIMPAT [Suspect]
     Indication: EPILEPSY
     Dosage: SEE IMAGE
     Route: 048
     Dates: start: 20100801, end: 20100101
  5. VIMPAT [Suspect]
     Indication: EPILEPSY
     Dosage: SEE IMAGE
     Route: 048
     Dates: start: 20100820, end: 20100101
  6. LAMICTAL [Concomitant]
  7. OMEPRAZOLE [Concomitant]
  8. EFFERALGAN /00020001/ [Concomitant]
  9. GAVISCON /00902401/ [Concomitant]

REACTIONS (9)
  - CONFUSIONAL STATE [None]
  - DEHYDRATION [None]
  - DELIRIUM [None]
  - DISTURBANCE IN ATTENTION [None]
  - EPILEPSY [None]
  - PSYCHOTIC DISORDER [None]
  - SOMNOLENCE [None]
  - URINARY TRACT INFECTION [None]
  - VERTIGO [None]
